FAERS Safety Report 6187625-0 (Version None)
Quarter: 2009Q2

REPORT INFORMATION
  Report Type: 
  Country: None (occurrence: None)
  Receive Date: 20090511
  Receipt Date: 20090428
  Transmission Date: 20091009
  Serious: Yes (Death)
  Sender: FDA-Public Use
  Company Number: TPA2009A00807

PATIENT
  Sex: Male

DRUGS (2)
  1. URLORIC (FEBUXOSTAT) [Suspect]
     Indication: GOUT
     Dosage: PER ORAL
     Route: 048
     Dates: end: 20090427
  2. METHADONE HCL [Concomitant]

REACTIONS (1)
  - CARDIAC DISORDER [None]
